FAERS Safety Report 24803585 (Version 1)
Quarter: 2025Q1

REPORT INFORMATION
  Report Type: Spontaneous
  Country: US (occurrence: US)
  Receive Date: 20250103
  Receipt Date: 20250103
  Transmission Date: 20250409
  Serious: Yes (Hospitalization)
  Sender: AMGEN
  Company Number: US-AMGEN-USASP2024255731

PATIENT
  Sex: Male

DRUGS (1)
  1. RAVICTI [Suspect]
     Active Substance: GLYCEROL PHENYLBUTYRATE
     Indication: Argininosuccinate synthetase deficiency
     Dosage: 1.7 MILLILITER, TID (1.1GM/ML)
     Route: 048
     Dates: start: 202208

REACTIONS (1)
  - Viral infection [Unknown]
